FAERS Safety Report 8857472 (Version 1)
Quarter: 2012Q4

REPORT INFORMATION
  Report Type: 
  Country: US (occurrence: US)
  Receive Date: 20121024
  Receipt Date: 20121024
  Transmission Date: 20130627
  Serious: Yes (Other)
  Sender: FDA-Public Use
  Company Number: US-ROCHE-GNE231831

PATIENT
  Age: 62 Year
  Sex: Female
  Weight: 90.1 kg

DRUGS (4)
  1. RAPTIVA [Suspect]
     Indication: PSORIASIS
     Dosage: 90 mg, 1/Week, CONDITIONING DOSE: 56 MG
     Route: 058
     Dates: start: 20050906
  2. RAPTIVA [Suspect]
     Indication: PUSTULAR PSORIASIS
     Route: 058
     Dates: start: 20060526, end: 20060719
  3. RAPTIVA [Suspect]
     Route: 058
     Dates: start: 20070418
  4. VALTREX [Concomitant]
     Indication: HERPES SIMPLEX
     Dosage: 500 mg, UNK
     Route: 050
     Dates: start: 20060430, end: 20060512

REACTIONS (4)
  - Pain [Recovered/Resolved]
  - Psoriasis [Unknown]
  - Herpes simplex [Unknown]
  - Pruritus [Unknown]
